FAERS Safety Report 21955443 (Version 1)
Quarter: 2023Q1

REPORT INFORMATION
  Report Type: Spontaneous
  Country: DE (occurrence: DE)
  Receive Date: 20230206
  Receipt Date: 20230206
  Transmission Date: 20230418
  Serious: Yes (Death, Hospitalization)
  Sender: FDA-Public Use
  Company Number: DE-DESMA-23DESBI004R

PATIENT
  Age: 46 Year
  Sex: Female
  Weight: 120 kg

DRUGS (10)
  1. HALDOL [Suspect]
     Active Substance: HALOPERIDOL
     Indication: Schizoaffective disorder
     Route: 065
  2. RISPERDAL [Suspect]
     Active Substance: RISPERIDONE
     Indication: Schizoaffective disorder
     Route: 065
  3. VALPROIC ACID [Suspect]
     Active Substance: VALPROIC ACID
     Indication: Schizoaffective disorder
     Route: 065
  4. ZUCLOPENTHIXOL ACETATE [Suspect]
     Active Substance: ZUCLOPENTHIXOL ACETATE
     Indication: Schizoaffective disorder
     Dosage: EVERY 2 WEEKS
     Route: 065
  5. BIPERIDEN [Suspect]
     Active Substance: BIPERIDEN
     Indication: Schizoaffective disorder
     Route: 065
  6. LITHIUM [Suspect]
     Active Substance: LITHIUM
     Indication: Schizoaffective disorder
     Route: 065
  7. LEVOMEPROMAZINE [Suspect]
     Active Substance: LEVOMEPROMAZINE
     Indication: Schizoaffective disorder
     Route: 065
  8. ENALAPRIL [Concomitant]
     Active Substance: ENALAPRIL
     Route: 065
  9. HYDROCHLOROTHIAZIDE [Concomitant]
     Active Substance: HYDROCHLOROTHIAZIDE
     Route: 065
  10. TRIAMTERENE [Concomitant]
     Active Substance: TRIAMTERENE

REACTIONS (3)
  - Cardiac failure [Fatal]
  - Ileus paralytic [Fatal]
  - Circulatory collapse [Fatal]
